FAERS Safety Report 6228847-X (Version None)
Quarter: 2009Q2

REPORT INFORMATION
  Report Type: 
  Country: None (occurrence: None)
  Receive Date: 20090615
  Receipt Date: 20070925
  Transmission Date: 20091009
  Serious: Yes (Hospitalization, Other)
  Sender: FDA-Public Use
  Company Number: US-ASTRAZENECA-2007UW18876

PATIENT
  Age: 19815 Day
  Sex: Female
  Weight: 77.1 kg

DRUGS (9)
  1. SEROQUEL [Suspect]
     Indication: DEPRESSION
     Dosage: 25-100MG
     Route: 048
     Dates: start: 19990723
  2. SEROQUEL [Suspect]
     Indication: ANXIETY
     Dosage: 25-100MG
     Route: 048
     Dates: start: 19990723
  3. SEROQUEL [Suspect]
     Route: 048
     Dates: start: 20000331, end: 20041022
  4. SEROQUEL [Suspect]
     Route: 048
     Dates: start: 20000331, end: 20041022
  5. CLONAZEPAM [Concomitant]
     Dates: start: 19990723
  6. TRAZODONE HCL [Concomitant]
     Dosage: 50 MG, 4 AT HS
     Dates: start: 19990723
  7. CLOMIPRAMINE HCL [Concomitant]
     Dosage: 15 MG, 4 AT HS
     Dates: start: 19990723
  8. IBUPROFEN [Concomitant]
     Dates: start: 20020815
  9. KETOROLAC TROMETHAMINE [Concomitant]
     Route: 048
     Dates: start: 20020815

REACTIONS (5)
  - BREAST CANCER [None]
  - BREAST OPERATION [None]
  - CHOLELITHIASIS [None]
  - DIABETES MELLITUS [None]
  - GALLBLADDER OPERATION [None]
